FAERS Safety Report 13578700 (Version 1)
Quarter: 2017Q2

REPORT INFORMATION
  Report Type: Spontaneous
  Country: GB (occurrence: GB)
  Receive Date: 20170524
  Receipt Date: 20170524
  Transmission Date: 20170830
  Serious: Yes (Other)
  Sender: FDA-Public Use
  Company Number: PHHY2017GB073915

PATIENT
  Age: 32 Year
  Sex: Male

DRUGS (3)
  1. ITRACONAZOLE. [Suspect]
     Active Substance: ITRACONAZOLE
     Indication: BRONCHOPULMONARY ASPERGILLOSIS
     Dosage: FOR 2 YEARS
     Route: 048
  2. SALBUTAMOL [Concomitant]
     Active Substance: ALBUTEROL
     Indication: BRONCHOPULMONARY ASPERGILLOSIS
     Route: 055
  3. FLIXOTIDE [Concomitant]
     Active Substance: FLUTICASONE PROPIONATE
     Indication: BRONCHOPULMONARY ASPERGILLOSIS
     Route: 055

REACTIONS (3)
  - Bronchopulmonary aspergillosis [Unknown]
  - Drug resistance [Unknown]
  - Condition aggravated [Unknown]
